FAERS Safety Report 7005260-9 (Version None)
Quarter: 2010Q3

REPORT INFORMATION
  Report Type: 
  Country: None (occurrence: None)
  Receive Date: 20100921
  Receipt Date: 20100908
  Transmission Date: 20110219
  Serious: Yes (Other)
  Sender: FDA-Public Use
  Company Number: PHHY2010JP60464

PATIENT
  Age: 46 Year
  Sex: Male

DRUGS (4)
  1. CYCLOSPORINE [Suspect]
     Indication: PSORIASIS
     Dosage: 200 - 300 MG/DAY
     Dates: end: 20080501
  2. METHOTREXATE [Concomitant]
  3. MIZORIBINE [Concomitant]
  4. INFLIXIMAB [Concomitant]
     Dosage: UNK
     Dates: start: 20100401

REACTIONS (5)
  - ARTHRALGIA [None]
  - PSORIASIS [None]
  - PSORIATIC ARTHROPATHY [None]
  - RASH [None]
  - RENAL FAILURE CHRONIC [None]
